FAERS Safety Report 7475657-1 (Version None)
Quarter: 2011Q2

REPORT INFORMATION
  Report Type: 
  Country: None (occurrence: None)
  Receive Date: 20110512
  Receipt Date: 20110506
  Transmission Date: 20111010
  Serious: Yes (Hospitalization)
  Sender: FDA-Public Use
  Company Number: FR-ROCHE-775881

PATIENT
  Sex: Female

DRUGS (7)
  1. FOLIC ACID [Concomitant]
     Dates: start: 20050101
  2. PROZAC [Concomitant]
     Dates: start: 20050101
  3. PREDNISONE [Concomitant]
     Dates: start: 20050101
  4. PANTOPRAZOLE [Concomitant]
     Dates: start: 20050101
  5. ACTEMRA [Suspect]
     Indication: RHEUMATOID ARTHRITIS
     Route: 042
     Dates: start: 20100701, end: 20101221
  6. ACETAMINOPHEN [Concomitant]
     Dates: start: 20050101
  7. RISPERDAL [Concomitant]
     Dates: start: 20050101

REACTIONS (1)
  - VENTRICULAR EXTRASYSTOLES [None]
